FAERS Safety Report 9448328 (Version 1)
Quarter: 2013Q3

REPORT INFORMATION
  Report Type: Report from Study
  Country: US (occurrence: US)
  Receive Date: 20130808
  Receipt Date: 20130808
  Transmission Date: 20140515
  Serious: Yes (Hospitalization)
  Sender: FDA-Public Use
  Company Number: US-ABBOTT-13P-163-1129100-00

PATIENT
  Age: 57 Year
  Sex: Male
  Weight: 83.99 kg

DRUGS (9)
  1. CREON [Suspect]
     Indication: PANCREATIC INSUFFICIENCY
     Dosage: 2 CAPSULES WITH BREAKFAST AND LUNCH, 3 CAPSULES WITH DINNER, 1 CAPSULE WITH SNACKS
     Dates: start: 2010
  2. NOVOLOG [Concomitant]
     Indication: PRODUCT USED FOR UNKNOWN INDICATION
  3. LANTUS [Concomitant]
     Indication: PRODUCT USED FOR UNKNOWN INDICATION
  4. LISINOPRIL [Concomitant]
     Indication: HYPERTENSION
  5. LASIX [Concomitant]
     Indication: HYPERTENSION
  6. SODIUM BICARBONATE [Concomitant]
     Indication: PROPHYLAXIS
  7. SODIUM BICARBONATE [Concomitant]
     Indication: METABOLIC ACIDOSIS
  8. CO Q 10 [Concomitant]
     Indication: SUPPLEMENTATION THERAPY
  9. VITAMIN D NOS [Concomitant]
     Indication: VITAMIN SUPPLEMENTATION

REACTIONS (9)
  - Sepsis [Recovered/Resolved]
  - Nausea [Recovered/Resolved]
  - Vomiting [Recovered/Resolved]
  - Blood glucose increased [Recovered/Resolved]
  - Hypotension [Recovered/Resolved]
  - Electrolyte imbalance [Recovered/Resolved]
  - Cardiac enzymes increased [Recovered/Resolved]
  - Myocardial infarction [Recovered/Resolved]
  - Blood potassium increased [Recovered/Resolved]
